FAERS Safety Report 21503342 (Version 7)
Quarter: 2024Q4

REPORT INFORMATION
  Report Type: Spontaneous
  Country: PT (occurrence: PT)
  Receive Date: 20221025
  Receipt Date: 20241216
  Transmission Date: 20250115
  Serious: Yes (Death, Hospitalization, Other)
  Sender: PFIZER
  Company Number: PT-009507513-2210PRT005824

PATIENT
  Age: 78 Year
  Sex: Male

DRUGS (2)
  1. AXITINIB [Suspect]
     Active Substance: AXITINIB
     Indication: Clear cell renal cell carcinoma
     Dosage: 5 MG, 2X/DAY (12/12H)
  2. PEMBROLIZUMAB [Suspect]
     Active Substance: PEMBROLIZUMAB
     Indication: Clear cell renal cell carcinoma
     Dosage: 400 MG, CYCLIC (EVERY 6 WEEKS)
     Dates: start: 20220902, end: 20220902

REACTIONS (8)
  - Immune-mediated myocarditis [Fatal]
  - Immune-mediated myositis [Fatal]
  - Necrotising myositis [Unknown]
  - Quadriparesis [Unknown]
  - Toxicity to various agents [Unknown]
  - Rhabdomyolysis [Unknown]
  - Ejection fraction decreased [Unknown]
  - Ataxia [Unknown]

NARRATIVE: CASE EVENT DATE: 20220101
